FAERS Safety Report 12894195 (Version 2)
Quarter: 2016Q4

REPORT INFORMATION
  Report Type: Spontaneous
  Country: US (occurrence: US)
  Receive Date: 20161028
  Receipt Date: 20161215
  Transmission Date: 20170207
  Serious: Yes (Other)
  Sender: FDA-Public Use
  Company Number: US-SAOL THERAPEUTICS-2016SAO00916

PATIENT
  Sex: Male

DRUGS (1)
  1. GABLOFEN [Suspect]
     Active Substance: BACLOFEN
     Route: 037

REACTIONS (4)
  - Implant site discolouration [Unknown]
  - Weight increased [Unknown]
  - Implant site swelling [Unknown]
  - Implant site pain [Unknown]

NARRATIVE: CASE EVENT DATE: 201505
